FAERS Safety Report 25846762 (Version 1)
Quarter: 2025Q3

REPORT INFORMATION
  Report Type: Spontaneous
  Country: US (occurrence: US)
  Receive Date: 20250925
  Receipt Date: 20250925
  Transmission Date: 20251021
  Serious: Yes (Other)
  Sender: OTSUKA
  Company Number: US-OTSUKA-2025_023101

PATIENT
  Age: 52 Year
  Sex: Male

DRUGS (1)
  1. REXULTI [Suspect]
     Active Substance: BREXPIPRAZOLE
     Indication: Major depression
     Dosage: 1 TABLET (0.5 MG), DAILY
     Route: 048
     Dates: start: 20250808, end: 20250906

REACTIONS (4)
  - Blood glucose fluctuation [Recovering/Resolving]
  - Feeling abnormal [Recovering/Resolving]
  - Anger [Recovering/Resolving]
  - Sleep disorder [Recovering/Resolving]

NARRATIVE: CASE EVENT DATE: 20250801
